FAERS Safety Report 5470674-5 (Version None)
Quarter: 2007Q3

REPORT INFORMATION
  Report Type: 
  Country: None (occurrence: None)
  Receive Date: 20070928
  Receipt Date: 20070918
  Transmission Date: 20080115
  Serious: Yes (Hospitalization)
  Sender: FDA-Public Use
  Company Number: US-ELI_LILLY_AND_COMPANY-US200709003689

PATIENT
  Age: 84 Year
  Sex: Female

DRUGS (2)
  1. FORTEO [Suspect]
     Dates: start: 20070101, end: 20070101
  2. FOSAMAX [Concomitant]

REACTIONS (3)
  - HERNIA REPAIR [None]
  - NAUSEA [None]
  - STOMACH DISCOMFORT [None]
